FAERS Safety Report 23447216 (Version 1)
Quarter: 2024Q1

REPORT INFORMATION
  Report Type: Spontaneous
  Country: CN (occurrence: CN)
  Receive Date: 20240126
  Receipt Date: 20240126
  Transmission Date: 20240410
  Serious: Yes (Hospitalization, Other)
  Sender: FDA-Public Use
  Company Number: None

PATIENT
  Age: 60 Year
  Sex: Female

DRUGS (1)
  1. CYCLOPHOSPHAMIDE [Suspect]
     Active Substance: CYCLOPHOSPHAMIDE
     Indication: B-cell lymphoma
     Dosage: 1 G, QD, AS A PART OF ANTI-TUMOR TREATMENT
     Route: 041
     Dates: start: 20240112, end: 20240112

REACTIONS (13)
  - Cerebrovascular accident [Unknown]
  - B-cell lymphoma recurrent [Unknown]
  - Myelosuppression [Recovering/Resolving]
  - Infection [Recovering/Resolving]
  - Pyrexia [Recovering/Resolving]
  - Asthenia [Unknown]
  - Full blood count decreased [Unknown]
  - Platelet count decreased [Unknown]
  - Therapeutic response delayed [Unknown]
  - Hyporesponsive to stimuli [Unknown]
  - Tongue coated [Unknown]
  - Dyspnoea [Unknown]
  - Confusional state [Unknown]

NARRATIVE: CASE EVENT DATE: 20240117
